FAERS Safety Report 4526284-7 (Version None)
Quarter: 2004Q4

REPORT INFORMATION
  Report Type: 
  Country: None (occurrence: None)
  Receive Date: 20041214
  Receipt Date: 20041202
  Transmission Date: 20050328
  Serious: Yes (Other)
  Sender: FDA-Public Use
  Company Number: GB-SOLVAY-00204004325

PATIENT
  Age: 58 Year
  Sex: Male
  Weight: 78.9 kg

DRUGS (4)
  1. ASPIRIN [Concomitant]
     Indication: ILL-DEFINED DISORDER
     Dosage: DAILY DOSE:  UNKNOWN
     Route: 048
  2. COVERSYL [Suspect]
     Indication: CEREBROVASCULAR ACCIDENT
     Dosage: DAILY DOSE: 4 MILLIGRAM(S)
     Route: 048
     Dates: start: 20031002, end: 20040421
  3. BENDROFLUAZIDE [Concomitant]
     Indication: ILL-DEFINED DISORDER
     Dosage: DAILY DOSE:  UNKNOWN
     Route: 048
  4. SIMVASTATIN [Concomitant]
     Indication: ILL-DEFINED DISORDER
     Dosage: DAILY DOSE:  UNKNOWN
     Route: 048

REACTIONS (2)
  - CONDUCTIVE DEAFNESS [None]
  - EAR CONGESTION [None]
